FAERS Safety Report 5706001-5 (Version None)
Quarter: 2008Q2

REPORT INFORMATION
  Report Type: 
  Country: None (occurrence: None)
  Receive Date: 20080415
  Receipt Date: 20080403
  Transmission Date: 20081010
  Serious: Yes (Other)
  Sender: FDA-Public Use
  Company Number: FR-PFIZER INC-2008030133

PATIENT
  Sex: Female
  Weight: 59 kg

DRUGS (7)
  1. MARAVIROC [Suspect]
     Indication: HIV TEST POSITIVE
     Route: 048
     Dates: start: 20071206, end: 20080324
  2. CITALOPRAM HYDROBROMIDE [Concomitant]
     Route: 048
  3. ATOVAQUONE [Concomitant]
     Route: 048
  4. AZITHROMYCIN [Concomitant]
     Route: 048
  5. PROMEGESTONE [Concomitant]
     Route: 048
  6. CLONAZEPAM [Concomitant]
     Route: 048
  7. DI-ANTALVIC [Concomitant]
     Route: 048

REACTIONS (9)
  - CONSTIPATION [None]
  - EAR PAIN [None]
  - HEADACHE [None]
  - HYPERSENSITIVITY [None]
  - NAUSEA [None]
  - ORTHOSTATIC HYPOTENSION [None]
  - UNEVALUABLE EVENT [None]
  - VERTIGO [None]
  - VOMITING [None]
